FAERS Safety Report 5657293-2 (Version None)
Quarter: 2008Q1

REPORT INFORMATION
  Report Type: 
  Country: None (occurrence: None)
  Receive Date: 20080310
  Receipt Date: 20080229
  Transmission Date: 20080703
  Serious: Yes (Other)
  Sender: FDA-Public Use
  Company Number: US-PFIZER INC-2007108422

PATIENT
  Sex: Female
  Weight: 88 kg

DRUGS (7)
  1. CHANTIX [Suspect]
     Indication: SMOKING CESSATION THERAPY
     Dates: start: 20071130, end: 20071210
  2. DRUG, UNSPECIFIED [Interacting]
  3. CYMBALTA [Concomitant]
  4. LAMICTAL [Concomitant]
  5. ELAVIL [Concomitant]
  6. VITAMINS [Concomitant]
  7. ATENOLOL [Concomitant]

REACTIONS (5)
  - AGITATION [None]
  - ANGER [None]
  - DRUG INTERACTION [None]
  - IRRITABILITY [None]
  - SUICIDAL IDEATION [None]
